FAERS Safety Report 7419917-9 (Version None)
Quarter: 2011Q2

REPORT INFORMATION
  Report Type: 
  Country: None (occurrence: None)
  Receive Date: 20110413
  Receipt Date: 20110413
  Transmission Date: 20111010
  Serious: Yes (Life-Threatening)
  Sender: FDA-Public Use
  Company Number: None

PATIENT
  Age: 69 Year
  Sex: Male
  Weight: 83.2 kg

DRUGS (1)
  1. ZOLPIDEM [Suspect]
     Indication: INSOMNIA
     Dosage: 10 MG NIGHTLY
     Dates: start: 20100601, end: 20110112

REACTIONS (3)
  - ROAD TRAFFIC ACCIDENT [None]
  - AMNESIA [None]
  - SOMNAMBULISM [None]
